FAERS Safety Report 7830416-2 (Version None)
Quarter: 2011Q4

REPORT INFORMATION
  Report Type: 
  Country: None (occurrence: None)
  Receive Date: 20111021
  Receipt Date: 20111010
  Transmission Date: 20120403
  Serious: Yes (Death, Other)
  Sender: FDA-Public Use
  Company Number: ES-ACTELION-A-CH2011-55258

PATIENT
  Sex: Female

DRUGS (7)
  1. OMEPRAZOLE [Concomitant]
  2. BISOPROLOL [Concomitant]
  3. TRACLEER [Suspect]
     Dosage: 62.5 MG, BID
     Route: 048
     Dates: start: 20100325, end: 20100426
  4. TRACLEER [Suspect]
     Indication: SKIN ULCER
     Dosage: 125 MG, BID
     Route: 048
     Dates: start: 20100427, end: 20100701
  5. FUROSEMIDE [Concomitant]
  6. ENALAPRIL MALEATE [Concomitant]
  7. SILDENAFIL [Concomitant]

REACTIONS (4)
  - BETA HAEMOLYTIC STREPTOCOCCAL INFECTION [None]
  - CEREBELLAR HAEMATOMA [None]
  - HAEMORRHAGIC STROKE [None]
  - ENDOCARDITIS BACTERIAL [None]
